FAERS Safety Report 9659249 (Version 2)
Quarter: 2013Q4

REPORT INFORMATION
  Report Type: Spontaneous
  Country: ES (occurrence: ES)
  Receive Date: 20131031
  Receipt Date: 20131107
  Transmission Date: 20140711
  Serious: Yes (Disabling)
  Sender: FDA-Public Use
  Company Number: ES-009507513-1310ESP010928

PATIENT
  Age: 31 Year
  Sex: Female

DRUGS (1)
  1. NUVARING [Suspect]
     Indication: CONTRACEPTION
     Dosage: 0.120 MG / 0.015 MG
     Route: 067
     Dates: start: 201309, end: 201310

REACTIONS (5)
  - Gait disturbance [Recovered/Resolved]
  - Back pain [Recovering/Resolving]
  - Flank pain [Recovering/Resolving]
  - Withdrawal bleed [Unknown]
  - Incorrect drug administration duration [Unknown]
